FAERS Safety Report 5952577-2 (Version None)
Quarter: 2008Q4

REPORT INFORMATION
  Report Type: 
  Country: None (occurrence: None)
  Receive Date: 20081029
  Receipt Date: 20071015
  Transmission Date: 20090506
  Serious: Yes (Hospitalization, Other)
  Sender: FDA-Public Use
  Company Number: 41861

PATIENT
  Age: 50 Year
  Sex: Female

DRUGS (4)
  1. METHOTREXATE [Suspect]
     Dosage: 0.7ML/IM
     Dates: start: 20060801
  2. FOLIC ACID [Concomitant]
  3. PERCOCET [Concomitant]
  4. TRANSDERM SCOP [Concomitant]

REACTIONS (1)
  - PULMONARY EMBOLISM [None]
